FAERS Safety Report 6791269-7 (Version None)
Quarter: 2010Q2

REPORT INFORMATION
  Report Type: 
  Country: None (occurrence: None)
  Receive Date: 20100624
  Receipt Date: 20100621
  Transmission Date: 20101027
  Serious: Yes (Disabling, Other)
  Sender: FDA-Public Use
  Company Number: AU-WYE-G06300410

PATIENT
  Age: 46 Year
  Sex: Male

DRUGS (4)
  1. EFFEXOR XR [Suspect]
     Dosage: DOSE INCREASED SLOWLY 150MG IN THE MORNING AND 75MG EVERY AFTERNOON
     Dates: start: 20100101
  2. KARVEZIDE [Concomitant]
  3. CENTRUM [Suspect]
  4. XANAX [Concomitant]
     Dosage: UNKNOWN

REACTIONS (11)
  - ACTIVITIES OF DAILY LIVING IMPAIRED [None]
  - AFFECT LABILITY [None]
  - ANXIETY [None]
  - ASTHENIA [None]
  - CONDITION AGGRAVATED [None]
  - CONFUSIONAL STATE [None]
  - DISTURBANCE IN ATTENTION [None]
  - FATIGUE [None]
  - FEELING ABNORMAL [None]
  - HYPERHIDROSIS [None]
  - PANIC ATTACK [None]
